FAERS Safety Report 5755792-6 (Version None)
Quarter: 2008Q2

REPORT INFORMATION
  Report Type: 
  Country: None (occurrence: None)
  Receive Date: 20080602
  Receipt Date: 20080528
  Transmission Date: 20081010
  Serious: Yes (Other)
  Sender: FDA-Public Use
  Company Number: PHEH2008US04903

PATIENT
  Age: 69 Year
  Sex: Female
  Weight: 101.59 kg

DRUGS (7)
  1. TEKTURNA [Suspect]
     Indication: HYPERTENSION
     Dosage: 150 MG, QD
     Dates: end: 20080821
  2. QUINAPRIL [Concomitant]
     Dosage: 40 MG, UNK
  3. FUROSEMIDE [Concomitant]
     Dosage: 40 MG, UNK
  4. TOPROL-XL [Concomitant]
     Dosage: 50 MG, UNK
  5. BYETTA [Concomitant]
  6. LANTUS [Concomitant]
  7. VYTORIN [Concomitant]

REACTIONS (2)
  - EOSINOPHILIA [None]
  - HYPERSENSITIVITY [None]
